FAERS Safety Report 7442292-0 (Version None)
Quarter: 2011Q2

REPORT INFORMATION
  Report Type: 
  Country: None (occurrence: None)
  Receive Date: 20110428
  Receipt Date: 20110314
  Transmission Date: 20111010
  Serious: Yes (Other)
  Sender: FDA-Public Use
  Company Number: GB-ASTELLAS-2011EU001332

PATIENT
  Sex: Female

DRUGS (1)
  1. VESICARE [Suspect]
     Indication: HYPERTONIC BLADDER
     Dosage: UNK
     Route: 048

REACTIONS (1)
  - VERTIGO [None]
